FAERS Safety Report 20848773 (Version 1)
Quarter: 2022Q2

REPORT INFORMATION
  Report Type: Spontaneous
  Country: NL (occurrence: NL)
  Receive Date: 20220519
  Receipt Date: 20220519
  Transmission Date: 20220721
  Serious: Yes (Other)
  Sender: FDA-Public Use
  Company Number: NL-BAYER-2022P002190

PATIENT
  Sex: Female

DRUGS (1)
  1. MIRENA [Suspect]
     Active Substance: LEVONORGESTREL
     Dosage: 20?G/DAY
     Route: 015
     Dates: start: 20220506

REACTIONS (8)
  - Uterine perforation [Recovered/Resolved]
  - Loss of consciousness [Recovered/Resolved]
  - Genital haemorrhage [Recovered/Resolved]
  - Abdominal pain [Recovered/Resolved]
  - Procedural pain [Recovered/Resolved]
  - Complication of device insertion [None]
  - Malaise [Recovered/Resolved]
  - Abdominal distension [Recovered/Resolved]
